FAERS Safety Report 5851428-4 (Version None)
Quarter: 2008Q3

REPORT INFORMATION
  Report Type: 
  Country: None (occurrence: None)
  Receive Date: 20080820
  Receipt Date: 20080731
  Transmission Date: 20090109
  Serious: Yes (Death)
  Sender: FDA-Public Use
  Company Number: CH-ROCHE-579573

PATIENT

DRUGS (3)
  1. RIVOTRIL [Suspect]
  2. TEGRETOL [Suspect]
  3. ELEVIT PRONATAL [Concomitant]
     Dates: start: 20070420

REACTIONS (2)
  - DRUG EXPOSURE DURING PREGNANCY [None]
  - SUDDEN INFANT DEATH SYNDROME [None]
